FAERS Safety Report 7532361-9 (Version None)
Quarter: 2011Q2

REPORT INFORMATION
  Report Type: 
  Country: None (occurrence: None)
  Receive Date: 20110608
  Receipt Date: 20110601
  Transmission Date: 20111010
  Serious: Yes (Hospitalization, Other)
  Sender: FDA-Public Use
  Company Number: JP-PFIZER INC-2011117929

PATIENT

DRUGS (1)
  1. GENOTROPIN [Suspect]
     Dosage: 2 MG, 1X/DAY
     Route: 058

REACTIONS (2)
  - NEPHROTIC SYNDROME [None]
  - ASTHMA [None]
